FAERS Safety Report 23024007 (Version 3)
Quarter: 2023Q4

REPORT INFORMATION
  Report Type: Spontaneous
  Country: JP (occurrence: JP)
  Receive Date: 20231003
  Receipt Date: 20231120
  Transmission Date: 20240109
  Serious: Yes (Other)
  Sender: FDA-Public Use
  Company Number: JP-BEH-2023163601

PATIENT
  Age: 80 Year
  Sex: Male

DRUGS (5)
  1. FIBROGAMMIN P [Suspect]
     Active Substance: FACTOR XIII CONCENTRATE (HUMAN)
     Indication: Suture rupture
     Dosage: 6 BOTTLES(VIAL), QD
     Route: 042
     Dates: start: 20230923, end: 20230927
  2. FENTANYL [Suspect]
     Active Substance: FENTANYL\FENTANYL CITRATE
     Route: 065
  3. PROPOFOL [Concomitant]
     Active Substance: PROPOFOL
  4. DEXMEDETOMIDINE [Concomitant]
     Active Substance: DEXMEDETOMIDINE
  5. IRON SUCROSE [Concomitant]
     Active Substance: IRON SUCROSE

REACTIONS (2)
  - Bradycardia [Recovering/Resolving]
  - Hypothermia [Recovering/Resolving]

NARRATIVE: CASE EVENT DATE: 20230925
